FAERS Safety Report 5746735-X (Version None)
Quarter: 2008Q2

REPORT INFORMATION
  Report Type: 
  Country: None (occurrence: None)
  Receive Date: 20080522
  Receipt Date: 20080519
  Transmission Date: 20081010
  Serious: Yes (Disabling)
  Sender: FDA-Public Use
  Company Number: FR-AVENTIS-200811662FR

PATIENT
  Age: 49 Year
  Sex: Female
  Weight: 56 kg

DRUGS (1)
  1. LOVENOX [Suspect]
     Route: 058
     Dates: start: 20041020, end: 20041210

REACTIONS (2)
  - CYANOSIS [None]
  - URTICARIA CHOLINERGIC [None]
